FAERS Safety Report 22104675 (Version 1)
Quarter: 2023Q1

REPORT INFORMATION
  Report Type: Spontaneous
  Country: CN (occurrence: CN)
  Receive Date: 20230316
  Receipt Date: 20230316
  Transmission Date: 20230417
  Serious: Yes (Other)
  Sender: FDA-Public Use
  Company Number: CN-002147023-NVSC2023CN056960

PATIENT
  Age: 50 Year
  Sex: Female
  Weight: 57 kg

DRUGS (3)
  1. TEGRETOL [Suspect]
     Active Substance: CARBAMAZEPINE
     Indication: Epilepsy
     Dosage: 200 MG, QD
     Route: 065
     Dates: start: 20230214
  2. TEGRETOL [Suspect]
     Active Substance: CARBAMAZEPINE
     Dosage: 0.10 G, QD
     Route: 048
     Dates: start: 20230216, end: 20230222
  3. VALPROATE SODIUM [Concomitant]
     Active Substance: VALPROATE SODIUM
     Indication: Product used for unknown indication
     Dosage: UNK
     Route: 065

REACTIONS (5)
  - Haemoglobin decreased [Recovering/Resolving]
  - Granulocyte count decreased [Recovering/Resolving]
  - Haematocrit decreased [Recovering/Resolving]
  - White blood cell count decreased [Recovering/Resolving]
  - Red blood cell count decreased [Recovering/Resolving]

NARRATIVE: CASE EVENT DATE: 20230220
